FAERS Safety Report 19041504 (Version 1)
Quarter: 2021Q1

REPORT INFORMATION
  Report Type: Other
  Country: CA (occurrence: CA)
  Receive Date: 20210322
  Receipt Date: 20210322
  Transmission Date: 20210420
  Serious: Yes (Other)
  Sender: FDA-Public Use
  Company Number: CA-APOTEX-2021AP006109

PATIENT

DRUGS (1)
  1. SALBUTAMOL [Suspect]
     Active Substance: ALBUTEROL
     Indication: PRODUCT USED FOR UNKNOWN INDICATION
     Dosage: 100 MICROGRAM
     Route: 065

REACTIONS (7)
  - Feeling abnormal [Not Recovered/Not Resolved]
  - Therapeutic product ineffective [Not Recovered/Not Resolved]
  - Angina pectoris [Not Recovered/Not Resolved]
  - Speech disorder [Not Recovered/Not Resolved]
  - Pulse abnormal [Not Recovered/Not Resolved]
  - Hypertension [Not Recovered/Not Resolved]
  - Product substitution issue [Not Recovered/Not Resolved]
